FAERS Safety Report 7907142-4 (Version None)
Quarter: 2011Q4

REPORT INFORMATION
  Report Type: 
  Country: None (occurrence: None)
  Receive Date: 20111110
  Receipt Date: 20110310
  Transmission Date: 20120403
  Serious: Yes (Other)
  Sender: FDA-Public Use
  Company Number: US-ASTRAZENECA-2011SE13736

PATIENT
  Age: 74 Year
  Sex: Female

DRUGS (2)
  1. AMOLADAPINE-BENZEPRIL [Concomitant]
  2. LISINOPRIL [Suspect]
     Route: 048

REACTIONS (1)
  - CARDIAC FLUTTER [None]
